FAERS Safety Report 21817165 (Version 1)
Quarter: 2023Q1

REPORT INFORMATION
  Report Type: Spontaneous
  Country: AT (occurrence: AT)
  Receive Date: 20230104
  Receipt Date: 20230104
  Transmission Date: 20230418
  Serious: Yes (Other)
  Sender: FDA-Public Use
  Company Number: None

PATIENT
  Age: 75 Year
  Sex: Female

DRUGS (10)
  1. VEKLURY [Suspect]
     Active Substance: REMDESIVIR
     Indication: Product used for unknown indication
     Dosage: 100 MG - PLV F.E. KONZ Z.HERST.E. INF-LSG
     Route: 042
     Dates: start: 20221225, end: 20221228
  2. ASPIRIN [Concomitant]
     Active Substance: ASPIRIN
     Dosage: 1-0-0
  3. HYDROXYCHLOROQUINE [Concomitant]
     Active Substance: HYDROXYCHLOROQUINE
     Dosage: 1-0-0
  4. FUROSEMIDE\POTASSIUM CHLORIDE [Concomitant]
     Active Substance: FUROSEMIDE\POTASSIUM CHLORIDE
     Dosage: 1/2-1/2-0
  5. DEXAMETHASONE [Concomitant]
     Active Substance: DEXAMETHASONE
     Dosage: 1-0-0
  6. BISOPROLOL [Concomitant]
     Active Substance: BISOPROLOL
     Dosage: 1-0-0
  7. PANTOPRAZOLE SODIUM [Concomitant]
     Active Substance: PANTOPRAZOLE SODIUM
     Dosage: 1-0-0
  8. URSODIOL [Concomitant]
     Active Substance: URSODIOL
     Dosage: 0-1-0
  9. PERFALGAN [Concomitant]
     Active Substance: ACETAMINOPHEN
     Dosage: BIS 3XTGL.
  10. ENOXAPARIN SODIUM [Concomitant]
     Active Substance: ENOXAPARIN SODIUM
     Dosage: 0-0-1

REACTIONS (1)
  - Drug-induced liver injury [Unknown]

NARRATIVE: CASE EVENT DATE: 20221228
